FAERS Safety Report 14444853 (Version 1)
Quarter: 2018Q1

REPORT INFORMATION
  Report Type: Spontaneous
  Country: US (occurrence: US)
  Receive Date: 20180126
  Receipt Date: 20180126
  Transmission Date: 20180509
  Serious: Yes (Hospitalization)
  Sender: FDA-Public Use
  Company Number: PHHY2018US009321

PATIENT
  Age: 29 Year
  Sex: Male

DRUGS (2)
  1. ERTAPENEM. [Interacting]
     Active Substance: ERTAPENEM SODIUM
     Indication: PRODUCT USED FOR UNKNOWN INDICATION
     Dosage: 1 G, UNK
     Route: 042
  2. VALPROIC ACID SANDOZ [Suspect]
     Active Substance: VALPROIC ACID
     Indication: AFFECTIVE DISORDER
     Dosage: UNK
     Route: 065

REACTIONS (8)
  - Hypocalcaemia [Unknown]
  - Overdose [Unknown]
  - Toxicity to various agents [Recovering/Resolving]
  - Drug interaction [Unknown]
  - Hyperammonaemia [Unknown]
  - Hypernatraemia [Unknown]
  - Lactic acidosis [Unknown]
  - Hyperkalaemia [Unknown]
